FAERS Safety Report 8002998-1 (Version None)
Quarter: 2011Q4

REPORT INFORMATION
  Report Type: 
  Country: None (occurrence: None)
  Receive Date: 20111222
  Receipt Date: 20110722
  Transmission Date: 20120403
  Serious: No
  Sender: FDA-Public Use
  Company Number: US-GLAXOSMITHKLINE-A0938025A

PATIENT
  Sex: Male

DRUGS (2)
  1. ADVAIR DISKUS 100/50 [Concomitant]
  2. AVODART [Suspect]
     Route: 048

REACTIONS (2)
  - DRUG INEFFECTIVE [None]
  - SEXUAL DYSFUNCTION [None]
